FAERS Safety Report 7153668-3 (Version None)
Quarter: 2010Q4

REPORT INFORMATION
  Report Type: 
  Country: None (occurrence: None)
  Receive Date: 20101213
  Receipt Date: 20101207
  Transmission Date: 20110411
  Serious: Yes (Other)
  Sender: FDA-Public Use
  Company Number: US-BRACCO-003619

PATIENT
  Sex: Female
  Weight: 77 kg

DRUGS (24)
  1. MULTIHANCE [Suspect]
     Indication: DIAGNOSTIC PROCEDURE
     Route: 065
     Dates: start: 20070208, end: 20070208
  2. MULTIHANCE [Suspect]
     Route: 065
     Dates: start: 20070517, end: 20070517
  3. MULTIHANCE [Suspect]
     Route: 065
     Dates: start: 20070920, end: 20070920
  4. PROHANCE [Suspect]
     Indication: DIAGNOSTIC PROCEDURE
     Route: 065
  5. MAGNEVIST [Suspect]
     Indication: DIAGNOSTIC PROCEDURE
     Route: 065
  6. OMNISCAN [Suspect]
     Indication: DIAGNOSTIC PROCEDURE
     Route: 065
     Dates: start: 20050915, end: 20050915
  7. OPTIMARK [Suspect]
     Indication: DIAGNOSTIC PROCEDURE
     Route: 065
  8. DIGOXIN [Concomitant]
  9. METOPROLOL [Concomitant]
  10. NITROGLYCERIN [Concomitant]
  11. ADVAIR DISKUS 100/50 [Concomitant]
  12. EPOGEN [Concomitant]
  13. FERROUS SULFATE [Concomitant]
  14. ASPIRIN [Concomitant]
  15. CONTRAST MEDIA [Suspect]
     Indication: DIAGNOSTIC PROCEDURE
     Route: 065
     Dates: start: 20070517, end: 20070517
  16. CONTRAST MEDIA [Suspect]
     Route: 065
     Dates: start: 20070920, end: 20070920
  17. CONTRAST MEDIA [Suspect]
     Route: 065
     Dates: start: 20070208, end: 20070208
  18. CONTRAST MEDIA [Suspect]
     Route: 065
     Dates: start: 20050915, end: 20050915
  19. CONTRAST MEDIA [Suspect]
     Route: 065
     Dates: start: 20000919, end: 20000919
  20. CARDIZEM CD [Concomitant]
  21. NORVASC [Concomitant]
  22. PHOSLO [Concomitant]
  23. COZAAR [Concomitant]
  24. COUMADIN [Concomitant]

REACTIONS (25)
  - ADRENAL DISORDER [None]
  - AORTIC ARTERIOSCLEROSIS [None]
  - ASCITES [None]
  - BILE DUCT STONE [None]
  - BRONCHOPNEUMONIA [None]
  - CEREBRAL ATROPHY [None]
  - CHOLELITHIASIS [None]
  - CONGENITAL CYSTIC KIDNEY DISEASE [None]
  - CYSTITIS [None]
  - DIVERTICULUM INTESTINAL [None]
  - EMBOLISM ARTERIAL [None]
  - HEPATOSPLENOMEGALY [None]
  - KLEBSIELLA TEST POSITIVE [None]
  - LARYNGEAL DISORDER [None]
  - NEPHROGENIC SYSTEMIC FIBROSIS [None]
  - PLEURAL ADHESION [None]
  - PULMONARY HYPERTENSION [None]
  - PULMONARY OEDEMA [None]
  - RENAL ATROPHY [None]
  - RENAL FAILURE CHRONIC [None]
  - RESPIRATORY FAILURE [None]
  - SCAB [None]
  - SHOCK [None]
  - SKIN EROSION [None]
  - THYROID NEOPLASM [None]
